FAERS Safety Report 4889876-1 (Version None)
Quarter: 2006Q1

REPORT INFORMATION
  Report Type: 
  Country: None (occurrence: None)
  Receive Date: 20060124
  Receipt Date: 20051005
  Transmission Date: 20060701
  Serious: Yes (Death, Hospitalization)
  Sender: FDA-Public Use
  Company Number: US-MERCK-0510USA04827

PATIENT
  Age: 78 Year
  Sex: Male
  Weight: 68 kg

DRUGS (27)
  1. PRAVACHOL [Concomitant]
     Route: 065
  2. LORAZEPAM [Concomitant]
     Route: 065
  3. LEXAPRO [Concomitant]
     Route: 065
  4. FOSAMAX [Concomitant]
     Route: 065
  5. VITAMIN E [Concomitant]
     Route: 065
  6. TYLENOL (CAPLET) [Concomitant]
     Route: 065
  7. CALTRATE [Concomitant]
     Route: 065
  8. FERROUS SULFATE TAB [Concomitant]
     Route: 065
  9. ASPIRIN [Concomitant]
     Route: 065
  10. COMBIVENT [Concomitant]
     Route: 065
  11. NITROLINGUAL [Concomitant]
     Route: 065
  12. VIOXX [Suspect]
     Indication: ANKYLOSING SPONDYLITIS
     Route: 048
     Dates: start: 20000101, end: 20040101
  13. VIOXX [Suspect]
     Indication: OSTEOARTHRITIS
     Route: 048
     Dates: start: 20000101, end: 20040101
  14. SUCRALFATE [Concomitant]
     Route: 065
  15. TRICOR [Concomitant]
     Route: 065
  16. PREDNISONE [Concomitant]
     Route: 065
  17. NEXIUM [Concomitant]
     Route: 065
  18. IMDUR [Concomitant]
     Route: 065
  19. LANOXIN [Concomitant]
     Route: 065
  20. AVANDAMET [Concomitant]
     Route: 065
  21. CARDURA [Concomitant]
     Route: 065
  22. SINGULAIR [Concomitant]
     Route: 065
  23. PLAVIX [Concomitant]
     Route: 065
  24. COUMADIN [Concomitant]
     Route: 065
  25. FLOMAX (MORNIFLUMATE) [Concomitant]
     Route: 065
  26. TOPROL-XL [Concomitant]
     Route: 065
  27. ARICEPT [Concomitant]
     Route: 065

REACTIONS (24)
  - ANAEMIA [None]
  - ATRIAL FIBRILLATION [None]
  - BENIGN PROSTATIC HYPERPLASIA [None]
  - CARDIOVASCULAR DISORDER [None]
  - CATARACT [None]
  - CEREBROVASCULAR ACCIDENT [None]
  - CHRONIC OBSTRUCTIVE PULMONARY DISEASE [None]
  - CORONARY ARTERY DISEASE [None]
  - DEMENTIA [None]
  - DEPRESSION [None]
  - DIABETES MELLITUS [None]
  - DIZZINESS [None]
  - DYSPEPSIA [None]
  - FALL [None]
  - HYPERLIPIDAEMIA [None]
  - HYPERTENSION [None]
  - HYPOTENSION [None]
  - ISCHAEMIC STROKE [None]
  - MYOCARDIAL INFARCTION [None]
  - MYOCARDIAL ISCHAEMIA [None]
  - PITUITARY TUMOUR [None]
  - RENAL FAILURE [None]
  - RETINAL DISORDER [None]
  - UPPER RESPIRATORY TRACT INFECTION [None]
